FAERS Safety Report 8291404-8 (Version None)
Quarter: 2012Q2

REPORT INFORMATION
  Report Type: 
  Country: None (occurrence: None)
  Receive Date: 20120417
  Receipt Date: 20120410
  Transmission Date: 20120825
  Serious: Yes (Other)
  Sender: FDA-Public Use
  Company Number: GB-GLAXOSMITHKLINE-B0794694A

PATIENT
  Sex: Male

DRUGS (2)
  1. AVANDIA [Suspect]
     Indication: TYPE 2 DIABETES MELLITUS
     Route: 065
     Dates: start: 20100601
  2. METFORMIN HCL [Concomitant]

REACTIONS (3)
  - CEREBROVASCULAR ACCIDENT [None]
  - HYPERCHOLESTEROLAEMIA [None]
  - VISUAL FIELD DEFECT [None]
